FAERS Safety Report 5119222-X (Version None)
Quarter: 2006Q4

REPORT INFORMATION
  Report Type: 
  Country: None (occurrence: None)
  Receive Date: 20061003
  Receipt Date: 20060922
  Transmission Date: 20070319
  Serious: Yes (Hospitalization)
  Sender: FDA-Public Use
  Company Number: CH-JNJFOC-20060905302

PATIENT
  Age: 83 Year
  Sex: Male

DRUGS (8)
  1. RISPERDAL [Suspect]
     Indication: AGITATION
     Route: 048
  2. RISPERDAL [Suspect]
     Indication: RESTLESSNESS
     Route: 048
  3. TRANXILIUM [Suspect]
     Indication: ANXIETY DISORDER
     Route: 048
  4. DORMICUM [Suspect]
     Indication: INSOMNIA
     Route: 048
  5. BUSPAR [Concomitant]
     Route: 048
  6. ARTHROTEC [Concomitant]
     Route: 065
  7. CO-DAFALGAN [Concomitant]
     Route: 048
  8. NORVASC [Concomitant]
     Route: 048

REACTIONS (4)
  - COMA [None]
  - CONFUSIONAL STATE [None]
  - DRUG ABUSER [None]
  - GAIT DISTURBANCE [None]
